FAERS Safety Report 8203914-X (Version None)
Quarter: 2012Q1

REPORT INFORMATION
  Report Type: 
  Country: None (occurrence: None)
  Receive Date: 20120313
  Receipt Date: 20120305
  Transmission Date: 20120608
  Serious: Yes (Hospitalization)
  Sender: FDA-Public Use
  Company Number: US-BAYER-2011-067551

PATIENT
  Age: 25 Year
  Sex: Female
  Weight: 63.492 kg

DRUGS (13)
  1. DEPO-PROVERA [Concomitant]
     Dosage: UNK
     Dates: start: 20000501, end: 20030301
  2. WELLBUTRIN [Concomitant]
     Dosage: UNK
     Dates: start: 20030420
  3. AMBIEN [Concomitant]
     Indication: SLEEP DISORDER THERAPY
     Dosage: UNK
     Dates: start: 20030201, end: 20030601
  4. KEFLEX [Concomitant]
     Indication: URINARY TRACT INFECTION
  5. ZYRTEC [Concomitant]
     Indication: MULTIPLE ALLERGIES
     Dosage: UNK
     Dates: start: 20030101, end: 20040101
  6. CLONAZEPAM [Concomitant]
     Dosage: UNK
     Dates: start: 20030401, end: 20030501
  7. ALLEGRA [Concomitant]
     Indication: MULTIPLE ALLERGIES
     Dosage: UNK
     Dates: start: 20030101, end: 20040101
  8. TRAZODONE HCL [Concomitant]
     Dosage: UNK
     Dates: start: 20030312
  9. CLONAZEPAM [Concomitant]
     Dosage: UNK
     Dates: start: 20030402
  10. ACYCLOVIR [Concomitant]
     Dosage: UNK
     Dates: start: 20070101
  11. ZOLOFT [Concomitant]
     Dosage: UNK
     Dates: start: 20030212
  12. YASMIN [Suspect]
     Indication: MENSTRUAL CYCLE MANAGEMENT
     Dosage: UNK
     Dates: start: 20030420, end: 20030504
  13. RISPERDAL [Concomitant]
     Indication: BIPOLAR DISORDER
     Dosage: UNK
     Dates: start: 20030201

REACTIONS (7)
  - DYSPNOEA [None]
  - GENERAL PHYSICAL HEALTH DETERIORATION [None]
  - PAIN [None]
  - EMOTIONAL DISTRESS [None]
  - INJURY [None]
  - ANXIETY [None]
  - PULMONARY EMBOLISM [None]
